FAERS Safety Report 14640923 (Version 1)
Quarter: 2018Q1

REPORT INFORMATION
  Report Type: Spontaneous
  Country: US (occurrence: US)
  Receive Date: 20180314
  Receipt Date: 20180314
  Transmission Date: 20180509
  Serious: No
  Sender: FDA-Public Use
  Company Number: None

PATIENT
  Age: 12 Year
  Sex: Male
  Weight: 47.25 kg

DRUGS (1)
  1. METHYLPHENIDATE ER 27MG TAB MANUFACTURED BY TRIGEN LABORATO [Suspect]
     Active Substance: METHYLPHENIDATE HYDROCHLORIDE
     Indication: ATTENTION DEFICIT/HYPERACTIVITY DISORDER
     Dosage: ?          QUANTITY:1 TABLET(S);?
     Route: 048
     Dates: start: 20180115, end: 20180314

REACTIONS (3)
  - Appetite disorder [None]
  - Product substitution issue [None]
  - Mood altered [None]

NARRATIVE: CASE EVENT DATE: 20180314
